FAERS Safety Report 8186876-3 (Version None)
Quarter: 2012Q1

REPORT INFORMATION
  Report Type: 
  Country: None (occurrence: None)
  Receive Date: 20120301
  Receipt Date: 20120221
  Transmission Date: 20120608
  Serious: Yes (Other)
  Sender: FDA-Public Use
  Company Number: 2011SP047179

PATIENT
  Age: 53 Year
  Sex: Male

DRUGS (2)
  1. PEGINTERFERON ALFA-2B [Suspect]
     Indication: HEPATITIS C
     Dosage: 150 MCG;UNK;UNK
     Dates: start: 20110512, end: 20110919
  2. REBETOL [Suspect]
     Indication: HEPATITIS C
     Dosage: 1200 MG;UNK;UNK
     Dates: start: 20110512, end: 20110919

REACTIONS (1)
  - SARCOIDOSIS [None]
